FAERS Safety Report 8216866-3 (Version None)
Quarter: 2012Q1

REPORT INFORMATION
  Report Type: 
  Country: None (occurrence: None)
  Receive Date: 20120316
  Receipt Date: 20120307
  Transmission Date: 20120608
  Serious: Yes (Other)
  Sender: FDA-Public Use
  Company Number: US-ASTRAZENECA-2009SE29663

PATIENT
  Age: 66 Year
  Sex: Female

DRUGS (4)
  1. ATACAND [Suspect]
     Route: 048
  2. CRESTOR [Suspect]
     Route: 048
  3. NEXIUM [Suspect]
     Route: 048
  4. CRESTOR [Suspect]
     Route: 048

REACTIONS (6)
  - ADVERSE EVENT [None]
  - BONE PAIN [None]
  - ABDOMINAL DISCOMFORT [None]
  - MUSCULOSKELETAL CHEST PAIN [None]
  - MYALGIA [None]
  - BREAST CANCER [None]
